FAERS Safety Report 7756695 (Version 3)
Quarter: 2019Q2

REPORT INFORMATION
  Report Type: Spontaneous
  Country: PT (occurrence: PT)
  Receive Date: 20110112
  Receipt Date: 20190607
  Transmission Date: 20190711
  Serious: Yes (Hospitalization, Other)
  Sender: FDA-Public Use
  Company Number: PT-RANBAXY-2010RR-40958

PATIENT
  Sex: Female
  Weight: 2.33 kg

DRUGS (2)
  1. METHYLDOPA. [Concomitant]
     Active Substance: METHYLDOPA
     Indication: PRODUCT USED FOR UNKNOWN INDICATION
     Dosage: 500 MG, UNK
     Route: 015
  2. LISINOPRIL. [Suspect]
     Active Substance: LISINOPRIL
     Indication: PRODUCT USED FOR UNKNOWN INDICATION
     Dosage: 10 MG, UNK
     Route: 015

REACTIONS (10)
  - Premature baby [Not Recovered/Not Resolved]
  - Foetal exposure during pregnancy [Recovering/Resolving]
  - Hypertonia [Recovered/Resolved]
  - Fontanelle depressed [Recovered/Resolved]
  - Microcephaly [Unknown]
  - Polydipsia [Recovering/Resolving]
  - Dysmorphism [Unknown]
  - Antidiuretic hormone abnormality [Recovering/Resolving]
  - Hypernatraemia [Recovering/Resolving]
  - Renal failure [Recovering/Resolving]
